FAERS Safety Report 6364288-2 (Version None)
Quarter: 2009Q3

REPORT INFORMATION
  Report Type: 
  Country: None (occurrence: None)
  Receive Date: 20090919
  Receipt Date: 20090721
  Transmission Date: 20100115
  Serious: No
  Sender: FDA-Public Use
  Company Number: US-ABBOTT-09P-163-0586775-00

PATIENT
  Sex: Female
  Weight: 49.94 kg

DRUGS (6)
  1. HUMIRA [Suspect]
     Indication: CROHN'S DISEASE
     Dates: start: 20090508
  2. HUMIRA [Suspect]
     Indication: RHEUMATOID ARTHRITIS
  3. AZATHIOPRINE [Concomitant]
     Indication: DRUG USE FOR UNKNOWN INDICATION
  4. ASACOL [Concomitant]
     Indication: DRUG USE FOR UNKNOWN INDICATION
  5. LAMISIL [Concomitant]
     Indication: DRUG USE FOR UNKNOWN INDICATION
  6. BIRTH CONTROL PILLS [Concomitant]
     Indication: DRUG USE FOR UNKNOWN INDICATION

REACTIONS (2)
  - ARTHRALGIA [None]
  - PAIN [None]
